FAERS Safety Report 8620252 (Version 2)
Quarter: 2013Q1

REPORT INFORMATION
  Report Type: Spontaneous
  Country: US (occurrence: US)
  Receive Date: 20120618
  Receipt Date: 20130205
  Transmission Date: 20140127
  Serious: No
  Sender: FDA-Public Use
  Company Number: US-ASTRAZENECA-2010SE30043

PATIENT
  Age: 58 Year
  Sex: Male

DRUGS (6)
  1. SEROQUEL [Suspect]
     Indication: DEPRESSION
     Route: 048
  2. SEROQUEL [Suspect]
     Indication: DEPRESSION
     Route: 048
  3. SEROQUEL [Suspect]
     Indication: DEPRESSION
     Route: 048
  4. SEROQUEL [Suspect]
     Indication: DEPRESSION
     Route: 048
  5. SEROQUEL [Suspect]
     Indication: DEPRESSION
     Route: 048
  6. CORTISONE SHOT [Concomitant]

REACTIONS (6)
  - Pain [Unknown]
  - Arthritis [Unknown]
  - Malaise [Unknown]
  - Male orgasmic disorder [Unknown]
  - Sexual dysfunction [Not Recovered/Not Resolved]
  - Weight decreased [Unknown]
